FAERS Safety Report 6399786-9 (Version None)
Quarter: 2009Q4

REPORT INFORMATION
  Report Type: 
  Country: None (occurrence: None)
  Receive Date: 20091014
  Receipt Date: 20091008
  Transmission Date: 20100525
  Serious: Yes (Hospitalization)
  Sender: FDA-Public Use
  Company Number: US-BRISTOL-MYERS SQUIBB COMPANY-14812614

PATIENT
  Age: 77 Year
  Sex: Male
  Weight: 53 kg

DRUGS (2)
  1. CETUXIMAB [Suspect]
     Indication: NON-SMALL CELL LUNG CANCER
     Route: 042
     Dates: start: 20090706, end: 20090929
  2. RADIATION THERAPY [Suspect]
     Indication: NON-SMALL CELL LUNG CANCER

REACTIONS (2)
  - MUSCULAR WEAKNESS [None]
  - PULMONARY EMBOLISM [None]
